FAERS Safety Report 10147787 (Version 1)
Quarter: 2014Q2

REPORT INFORMATION
  Report Type: Spontaneous
  Country: US (occurrence: US)
  Receive Date: 20140501
  Receipt Date: 20140501
  Transmission Date: 20141212
  Serious: No
  Sender: FDA-Public Use
  Company Number: US-AMGEN-USASP2014024935

PATIENT
  Age: 63 Year
  Sex: Female

DRUGS (2)
  1. ENBREL [Suspect]
     Indication: RHEUMATOID ARTHRITIS
     Dosage: 50 MG, QWK
     Route: 065
     Dates: start: 20140101
  2. METHOTREXATE [Concomitant]
     Dosage: 50 UNK, UNK

REACTIONS (9)
  - Scab [Not Recovered/Not Resolved]
  - Skin lesion [Not Recovered/Not Resolved]
  - Scratch [Not Recovered/Not Resolved]
  - Arthropod bite [Not Recovered/Not Resolved]
  - Tenderness [Not Recovered/Not Resolved]
  - Confusional state [Not Recovered/Not Resolved]
  - Lymphadenopathy [Not Recovered/Not Resolved]
  - Injection site erythema [Not Recovered/Not Resolved]
  - Injection site pain [Not Recovered/Not Resolved]
